FAERS Safety Report 22201158 (Version 3)
Quarter: 2023Q2

REPORT INFORMATION
  Report Type: Report from Study
  Country: NL (occurrence: NL)
  Receive Date: 20230412
  Receipt Date: 20230619
  Transmission Date: 20230722
  Serious: Yes (Hospitalization)
  Sender: FDA-Public Use
  Company Number: NL-ABBVIE-4169486

PATIENT
  Age: 76 Year
  Sex: Male

DRUGS (13)
  1. CARBIDOPA\LEVODOPA [Suspect]
     Active Substance: CARBIDOPA\LEVODOPA
     Indication: Parkinson^s disease
     Dosage: CD: 2.9 ML/H; ED: 2.0ML;
     Route: 050
  2. CARBIDOPA\LEVODOPA [Suspect]
     Active Substance: CARBIDOPA\LEVODOPA
     Dosage: MD:7.0.0ML; CD: 4.9 ML/H; ED: 2.0ML; END: 2.0ML; CND: 2.9ML/H
     Route: 050
  3. CARBIDOPA\LEVODOPA [Suspect]
     Active Substance: CARBIDOPA\LEVODOPA
     Dosage: MD:7.0.0ML; CD: 4.9 ML/H; ED: 2.0ML; END: 2.0ML; CND: 2.9ML/H
     Route: 050
  4. CARBIDOPA\LEVODOPA [Suspect]
     Active Substance: CARBIDOPA\LEVODOPA
     Dosage: CD: 2.9 ML/H; ED: 2.0ML;?REMAINS AT 24 HOURS
     Route: 050
  5. CARBIDOPA\LEVODOPA [Suspect]
     Active Substance: CARBIDOPA\LEVODOPA
     Route: 050
  6. CARBIDOPA\LEVODOPA [Suspect]
     Active Substance: CARBIDOPA\LEVODOPA
     Dosage: CD: 2.9 ML/H; ED: 2.0ML;
     Route: 050
  7. CARBIDOPA\LEVODOPA [Suspect]
     Active Substance: CARBIDOPA\LEVODOPA
     Dosage: MD:7.0.0ML; CD: 4.9 ML/H; ED: 2.0ML; END: 2.0ML; CND: 2.6ML/H
     Route: 050
  8. CARBIDOPA\LEVODOPA [Suspect]
     Active Substance: CARBIDOPA\LEVODOPA
     Dosage: MD:7.0.0ML; CD: 4.9 ML/H; ED: 2.0ML; END: 2.0ML; CND: 2.6ML/H?REMAINS AT 16 HOURS
     Route: 050
  9. CARBIDOPA\LEVODOPA [Suspect]
     Active Substance: CARBIDOPA\LEVODOPA
     Dosage: MD:7.0.0ML; CD: 4.7 ML/H; ED: 2.0ML; END: 2.0ML; CND: 2.4ML/H?REMAINS AT 24 HOURS
     Route: 050
     Dates: start: 20170823
  10. CARBIDOPA\LEVODOPA [Suspect]
     Active Substance: CARBIDOPA\LEVODOPA
     Dosage: MD:7.0 ML; CD: 4.7 ML/H; ED: 2.0ML; END: 2.0ML; CND: 2.6 ML/H
     Route: 050
  11. CARBIDOPA\LEVODOPA [Suspect]
     Active Substance: CARBIDOPA\LEVODOPA
     Dosage: MD:7.0.0ML; CD: 4.9 ML/H; ED: 2.0ML; END: 2.0ML; CND: 2.9ML/H?REMAINS AT 24 HOURS
     Route: 050
  12. CARBIDOPA\LEVODOPA [Suspect]
     Active Substance: CARBIDOPA\LEVODOPA
     Dosage: MD:7.0.0ML; CD: 4.9 ML/H; ED: 2.0ML; END: 2.0ML; CND: 2.6ML/H
     Route: 050
  13. PRAMIPEXOLE [Concomitant]
     Active Substance: PRAMIPEXOLE
     Indication: Product used for unknown indication
     Dosage: STRENGTH 0.375 MILLIGRAM

REACTIONS (20)
  - Fall [Recovered/Resolved]
  - Drug ineffective [Recovering/Resolving]
  - Middle insomnia [Not Recovered/Not Resolved]
  - Muscle rigidity [Not Recovered/Not Resolved]
  - Paranoia [Not Recovered/Not Resolved]
  - Somnambulism [Not Recovered/Not Resolved]
  - Weight decreased [Not Recovered/Not Resolved]
  - Hallucination [Recovering/Resolving]
  - Somnolence [Not Recovered/Not Resolved]
  - Delusion [Not Recovered/Not Resolved]
  - Cognitive disorder [Not Recovered/Not Resolved]
  - Suspiciousness [Not Recovered/Not Resolved]
  - Dyskinesia [Not Recovered/Not Resolved]
  - Restlessness [Not Recovered/Not Resolved]
  - On and off phenomenon [Not Recovered/Not Resolved]
  - Dementia [Not Recovered/Not Resolved]
  - Memory impairment [Unknown]
  - Disturbance in attention [Unknown]
  - Unevaluable event [Not Recovered/Not Resolved]
  - Urinary retention [Not Recovered/Not Resolved]

NARRATIVE: CASE EVENT DATE: 20230101
